FAERS Safety Report 10568483 (Version 2)
Quarter: 2014Q4

REPORT INFORMATION
  Report Type: Spontaneous
  Country: US (occurrence: US)
  Receive Date: 20141106
  Receipt Date: 20141112
  Transmission Date: 20150529
  Serious: Yes (Life-Threatening, Other)
  Sender: FDA-Public Use
  Company Number: US-ASTELLAS-2014US016526

PATIENT
  Age: 79 Year
  Sex: Male

DRUGS (1)
  1. XTANDI [Suspect]
     Active Substance: ENZALUTAMIDE
     Indication: PROSTATE CANCER
     Route: 048
     Dates: start: 20140925, end: 20141024

REACTIONS (9)
  - Urinary tract infection [Unknown]
  - Malaise [Not Recovered/Not Resolved]
  - Mouth haemorrhage [Unknown]
  - Back pain [Unknown]
  - Dysarthria [Unknown]
  - Oedema peripheral [Unknown]
  - Asthenia [Unknown]
  - Pneumonia [Unknown]
  - Respiratory disorder [Unknown]

NARRATIVE: CASE EVENT DATE: 201410
